FAERS Safety Report 10219537 (Version 1)
Quarter: 2014Q2

REPORT INFORMATION
  Report Type: Spontaneous
  Country: US (occurrence: None)
  Receive Date: 20140604
  Receipt Date: 20140604
  Transmission Date: 20141212
  Serious: Yes (Other)
  Sender: FDA-Public Use
  Company Number: None

PATIENT
  Age: 53 Year
  Sex: Female

DRUGS (3)
  1. TECFIDERA 120MGX7DAYS, 240 MG MAIN [Suspect]
     Indication: MULTIPLE SCLEROSIS
     Dosage: 1 CAPSULE BID ORAL
     Route: 048
  2. AMBIEN [Concomitant]
  3. MULTIVITAMIN [Concomitant]

REACTIONS (3)
  - Sinusitis [None]
  - Ear infection [None]
  - Blood pressure increased [None]
